FAERS Safety Report 26048790 (Version 1)
Quarter: 2025Q4

REPORT INFORMATION
  Report Type: Report from Study
  Country: US (occurrence: US)
  Receive Date: 20251115
  Receipt Date: 20251115
  Transmission Date: 20260117
  Serious: Yes (Other)
  Sender: ABBVIE
  Company Number: US-ABBVIE-6541259

PATIENT
  Age: 75 Year
  Sex: Male

DRUGS (3)
  1. IMBRUVICA [Suspect]
     Active Substance: IBRUTINIB
     Indication: Product used for unknown indication
     Dosage: 1 CAPSULE PER DAY
     Route: 048
     Dates: start: 2025
  2. IMBRUVICA [Suspect]
     Active Substance: IBRUTINIB
     Indication: Product used for unknown indication
     Dosage: 3 CAPSULES PER DAY
     Route: 048
  3. GABAPENTIN [Concomitant]
     Active Substance: GABAPENTIN
     Indication: Product used for unknown indication

REACTIONS (10)
  - Coronary arterial stent insertion [Unknown]
  - Pain [Not Recovered/Not Resolved]
  - Hip arthroplasty [Unknown]
  - Fatigue [Unknown]
  - Heart rate abnormal [Not Recovered/Not Resolved]
  - Poor quality sleep [Unknown]
  - Nocturia [Unknown]
  - Unevaluable event [Unknown]
  - Product quality issue [Unknown]
  - Incorrect dose administered [Unknown]

NARRATIVE: CASE EVENT DATE: 20250327
